FAERS Safety Report 6838947-9 (Version None)
Quarter: 2010Q3

REPORT INFORMATION
  Report Type: 
  Country: None (occurrence: None)
  Receive Date: 20100713
  Receipt Date: 20071010
  Transmission Date: 20110219
  Serious: Yes (Other)
  Sender: FDA-Public Use
  Company Number: US-PFIZER INC-2007035873

PATIENT
  Sex: Male

DRUGS (6)
  1. CHANTIX [Suspect]
     Dates: start: 20070101, end: 20070101
  2. CORTICOSTEROIDS [Suspect]
     Indication: DYSPNOEA
     Dates: start: 20070501
  3. MUCINEX [Suspect]
     Indication: DYSPNOEA
     Dates: start: 20070501
  4. LIPITOR [Suspect]
  5. LUNESTA [Suspect]
     Indication: SLEEP DISORDER
  6. ALBUTEROL [Concomitant]

REACTIONS (7)
  - DEPRESSION [None]
  - DIARRHOEA [None]
  - DIZZINESS [None]
  - DRUG WITHDRAWAL SYNDROME [None]
  - DYSPNOEA [None]
  - INSOMNIA [None]
  - NERVOUSNESS [None]
